FAERS Safety Report 23274864 (Version 3)
Quarter: 2024Q1

REPORT INFORMATION
  Report Type: Spontaneous
  Country: US (occurrence: US)
  Receive Date: 20231208
  Receipt Date: 20240227
  Transmission Date: 20240410
  Serious: Yes (Other)
  Sender: FDA-Public Use
  Company Number: US-OPELLA-2023OHG017433

PATIENT
  Age: 82 Year
  Sex: Female

DRUGS (3)
  1. DULCOLAX (BISACODYL) [Suspect]
     Active Substance: BISACODYL
     Indication: Constipation
  2. DULCOLAX (BISACODYL) [Suspect]
     Active Substance: BISACODYL
     Dates: start: 202312, end: 202312
  3. TRAMADOL [Concomitant]
     Active Substance: TRAMADOL\TRAMADOL HYDROCHLORIDE
     Indication: Arthritis
     Dosage: HAS BEEN TAKING TRAMADOL FOR 8 YEARS

REACTIONS (5)
  - Loss of consciousness [Recovering/Resolving]
  - Abdominal pain upper [Recovering/Resolving]
  - Arthropathy [Unknown]
  - Dizziness [Recovering/Resolving]
  - Expired product administered [Unknown]

NARRATIVE: CASE EVENT DATE: 20231201
